FAERS Safety Report 4382389-5 (Version None)
Quarter: 2004Q2

REPORT INFORMATION
  Report Type: 
  Country: None (occurrence: None)
  Receive Date: 20040621
  Receipt Date: 20040621
  Transmission Date: 20050107
  Serious: Yes (Life-Threatening)
  Sender: FDA-Public Use
  Company Number: None

PATIENT
  Age: 46 Year
  Sex: Female
  Weight: 65 kg

DRUGS (7)
  1. THALIDOMIDE 200 MG CELGENE [Suspect]
     Indication: MULTIPLE MYELOMA
     Dosage: 200 MG DAILY ORAL
     Route: 048
     Dates: start: 20040519, end: 20040524
  2. DOCUSATE [Concomitant]
  3. VANCOMYCIN [Concomitant]
  4. ARTIFICIAL TEARS [Concomitant]
  5. PANTOPRAZOLE [Concomitant]
  6. CEFEPIME [Concomitant]
  7. DEXAMETHASONE [Concomitant]

REACTIONS (4)
  - CONJUNCTIVAL DISORDER [None]
  - DERMATITIS EXFOLIATIVE [None]
  - RASH [None]
  - SCLERAL DISORDER [None]
